FAERS Safety Report 7207630-2 (Version None)
Quarter: 2011Q1

REPORT INFORMATION
  Report Type: 
  Country: None (occurrence: None)
  Receive Date: 20110103
  Receipt Date: 20101223
  Transmission Date: 20110831
  Serious: Yes (Other)
  Sender: FDA-Public Use
  Company Number: FR-ASTRAZENECA-2010SE60796

PATIENT
  Age: 41 Year
  Sex: Male

DRUGS (2)
  1. CRESTOR [Suspect]
     Route: 048
  2. CYCLOSPORINE [Suspect]

REACTIONS (3)
  - RHABDOMYOLYSIS [None]
  - DRUG LEVEL FLUCTUATING [None]
  - DIARRHOEA [None]
